FAERS Safety Report 8424140-5 (Version None)
Quarter: 2012Q2

REPORT INFORMATION
  Report Type: 
  Country: None (occurrence: None)
  Receive Date: 20120608
  Receipt Date: 20120118
  Transmission Date: 20120825
  Serious: No
  Sender: FDA-Public Use
  Company Number: US-ASTRAZENECA-2012SE03689

PATIENT
  Age: 8 Year
  Sex: Male
  Weight: 27.2 kg

DRUGS (1)
  1. PULMICORT FLEXHALER [Suspect]
     Indication: ASTHMA
     Dosage: ONE PUFF TWICE DAILY, TOTAL DAILY DOSE: ONE PUFF.
     Route: 055

REACTIONS (2)
  - ASTHMA [None]
  - DRUG DOSE OMISSION [None]
